FAERS Safety Report 5660910-4 (Version None)
Quarter: 2008Q1

REPORT INFORMATION
  Report Type: 
  Country: None (occurrence: None)
  Receive Date: 20080311
  Receipt Date: 20080229
  Transmission Date: 20080703
  Serious: Yes (Other)
  Sender: FDA-Public Use
  Company Number: NL-WYE-G01024808

PATIENT
  Sex: Female

DRUGS (2)
  1. EFFEXOR XR [Suspect]
     Indication: DEPRESSION
     Dosage: UNKNOWN DOSE AND FREQUENCY
     Dates: start: 20040101, end: 20061201
  2. EFFEXOR XR [Suspect]
     Indication: ANXIETY
     Dates: start: 20070501

REACTIONS (1)
  - CARDIOMYOPATHY [None]
